FAERS Safety Report 10398135 (Version 2)
Quarter: 2014Q3

REPORT INFORMATION
  Report Type: Spontaneous
  Country: US (occurrence: US)
  Receive Date: 20140821
  Receipt Date: 20140821
  Transmission Date: 20150326
  Serious: Yes (Hospitalization, Other)
  Sender: FDA-Public Use
  Company Number: US-UNITED THERAPEUTICS-UNT-2014-003367

PATIENT
  Age: 13 Year
  Sex: Female
  Weight: 53.52 kg

DRUGS (4)
  1. REMODULIN [Suspect]
     Active Substance: TREPROSTINIL
     Indication: PULMONARY ARTERIAL HYPERTENSION
     Dosage: 0.032 ?G/KG, CONTINUING
     Route: 041
     Dates: start: 20140213
  2. COUMADINE [Concomitant]
     Active Substance: WARFARIN SODIUM
     Indication: PRODUCT USED FOR UNKNOWN INDICATION
     Dosage: 1 MG, 2.5 TABLETS DAILY
     Route: 048
  3. CALCIUM CARBONATE. [Concomitant]
     Active Substance: CALCIUM CARBONATE
     Indication: PRODUCT USED FOR UNKNOWN INDICATION
     Dosage: 200 MG, 2 RABLETS, TID
     Route: 048
  4. REVATIO [Concomitant]
     Active Substance: SILDENAFIL CITRATE
     Indication: PRODUCT USED FOR UNKNOWN INDICATION

REACTIONS (14)
  - Pyrexia [Unknown]
  - Hypotension [Unknown]
  - Device leakage [Recovered/Resolved]
  - Diarrhoea [Unknown]
  - Drug dose omission [Recovered/Resolved]
  - Oxygen saturation decreased [Unknown]
  - Tachypnoea [Unknown]
  - Device related infection [Recovered/Resolved]
  - Renal failure acute [Recovering/Resolving]
  - Fluid overload [Unknown]
  - Ventricular extrasystoles [Unknown]
  - Oedema [Unknown]
  - Injection site haemorrhage [Recovered/Resolved]
  - Anxiety [Unknown]

NARRATIVE: CASE EVENT DATE: 20140627
